FAERS Safety Report 12372384 (Version 2)
Quarter: 2016Q2

REPORT INFORMATION
  Report Type: Spontaneous
  Country: US (occurrence: US)
  Receive Date: 20160516
  Receipt Date: 20160630
  Transmission Date: 20160815
  Serious: Yes (Death, Hospitalization, Disabling, Other)
  Sender: FDA-Public Use
  Company Number: US-009507513-1605USA007730

PATIENT
  Sex: Male
  Weight: 113.38 kg

DRUGS (3)
  1. JANUVIA [Suspect]
     Active Substance: SITAGLIPTIN PHOSPHATE
     Indication: TYPE 2 DIABETES MELLITUS
     Dosage: 100 MG, QD
     Route: 048
     Dates: start: 20130711, end: 20140310
  2. JANUVIA [Suspect]
     Active Substance: SITAGLIPTIN PHOSPHATE
     Dosage: 100 MG, QD
     Route: 048
     Dates: start: 20140319, end: 201406
  3. ONGLYZA [Suspect]
     Active Substance: SAXAGLIPTIN HYDROCHLORIDE
     Indication: TYPE 2 DIABETES MELLITUS
     Dosage: 2.5 MG, BID
     Route: 065
     Dates: start: 201204, end: 201307

REACTIONS (15)
  - Pancreatic carcinoma metastatic [Fatal]
  - Gastric perforation [Fatal]
  - Electrocardiogram QT prolonged [Unknown]
  - Soft tissue disorder [Unknown]
  - Gastric ulcer [Unknown]
  - Haemorrhagic anaemia [Recovering/Resolving]
  - Acute kidney injury [Unknown]
  - Sepsis [Not Recovered/Not Resolved]
  - Back pain [Unknown]
  - Myalgia [Unknown]
  - Leukocytosis [Recovered/Resolved]
  - Duodenal ulcer [Unknown]
  - Duodenal obstruction [Unknown]
  - Myositis [Unknown]
  - Rhinitis allergic [Unknown]

NARRATIVE: CASE EVENT DATE: 201402
